FAERS Safety Report 5082215-5 (Version None)
Quarter: 2006Q3

REPORT INFORMATION
  Report Type: 
  Country: None (occurrence: None)
  Receive Date: 20060815
  Receipt Date: 20060815
  Transmission Date: 20061208
  Serious: Yes (Hospitalization)
  Sender: FDA-Public Use
  Company Number: None

PATIENT
  Age: 72 Year
  Sex: Male
  Weight: 99.2 kg

DRUGS (21)
  1. ESMOLOL HCL [Suspect]
     Dosage: 500MCG LOADING DOSE/50MCG/KG, /INTRAVENOUS DRIP
     Route: 042
     Dates: start: 20060314, end: 20060319
  2. DIGOXIN [Concomitant]
  3. AMLODIPINE BESYLATE [Concomitant]
  4. HALOPERIDOL LACTATE [Concomitant]
  5. FUROSEMIDE [Concomitant]
  6. LEVOTHYROXINE SODIUM [Concomitant]
  7. ENALAPRILAT [Concomitant]
  8. KETOROLAC TROMETHAMINE [Concomitant]
  9. ZOCOR [Concomitant]
  10. ATIVAN [Concomitant]
  11. HEPARIN NA,PORK [Concomitant]
  12. METOCLOPRAMIDE HCL [Concomitant]
  13. NOVOLIN (INSULIN,REGULAR) [Concomitant]
  14. ASPIRIN [Concomitant]
  15. MULTIVITAMINS (MVI-12) [Concomitant]
  16. TRACE METALS,CONCENTRATE [Concomitant]
  17. POTASSIUM CHLORIDE [Concomitant]
  18. MAGNESIUM SO4 [Concomitant]
  19. INSULIN,HUMAN REG (NOVOLIN-R) [Concomitant]
  20. PANTOPRAZOLE NA (PROTONIX) [Concomitant]
  21. CIPROFLOXACIN 400MG/200ML D5W [Concomitant]

REACTIONS (1)
  - HYPOTENSION [None]
